FAERS Safety Report 8378762-0 (Version None)
Quarter: 2012Q2

REPORT INFORMATION
  Report Type: 
  Country: None (occurrence: None)
  Receive Date: 20120522
  Receipt Date: 20120509
  Transmission Date: 20120825
  Serious: Yes (Hospitalization, Other)
  Sender: FDA-Public Use
  Company Number: US-MYLANLABS-2009AC000023

PATIENT
  Age: 69 Year
  Sex: Female
  Weight: 59 kg

DRUGS (63)
  1. PREDNISONE [Concomitant]
  2. PROPAFENONE HCL [Concomitant]
  3. MECLIZINE [Concomitant]
  4. METRONIDAZOLE [Concomitant]
  5. TAMIFLU [Concomitant]
  6. PROMETHAZINE [Concomitant]
  7. BACTRIM [Concomitant]
     Dosage: 1 TABLET 3X WEEKLY
  8. DIFLUCAN [Concomitant]
  9. ONDANSETRON [Concomitant]
  10. LISINOPRIL [Concomitant]
  11. LEVAQUIN [Concomitant]
  12. CIPROFLOXACIN [Concomitant]
  13. OMNICEF /00497602/ [Concomitant]
  14. CYTOXAN [Concomitant]
  15. MEGACE [Concomitant]
  16. TOSELIN [Concomitant]
  17. MIRTAZAPINE [Concomitant]
  18. MEGESTROL ACETATE [Concomitant]
  19. RISPERDAL [Concomitant]
  20. LYRICA [Concomitant]
  21. RYTHMOL [Concomitant]
  22. ZOFRAN [Concomitant]
  23. NEXIUM [Concomitant]
  24. MEPHYTON [Concomitant]
  25. VANCOMYCIN [Concomitant]
  26. FLAGYL [Concomitant]
  27. LASIX [Concomitant]
  28. REMERON [Concomitant]
  29. VANCOMYCIN [Concomitant]
  30. XALATAN [Concomitant]
  31. METOPROLOL [Concomitant]
  32. PATANOL [Concomitant]
  33. HYDROXYCHLOROQUINE SULFATE [Concomitant]
  34. HYDROCODONE BITARTRATE + ACETAMINOPHEN [Concomitant]
  35. HYDROCORTISONE [Concomitant]
  36. CEFDINIR [Concomitant]
  37. ASPIRIN [Concomitant]
  38. AZITHROMYCIN [Concomitant]
  39. SERTRALINE HYDROCHLORIDE [Concomitant]
  40. LORATADINE [Concomitant]
  41. LORAZEPAM [Concomitant]
  42. ELOCON [Concomitant]
     Route: 061
  43. FUROSEMIDE [Concomitant]
  44. FLUCONAZOLE [Concomitant]
  45. NYSTATIN [Concomitant]
  46. CYTOXAN [Concomitant]
  47. PROTONIX [Concomitant]
  48. VALTREX [Concomitant]
  49. CITALOPRAM [Concomitant]
  50. COUMADIN [Concomitant]
  51. ANTIVERT [Concomitant]
  52. LOVENOX [Concomitant]
  53. MACROBID [Concomitant]
  54. PSORCON [Concomitant]
  55. DIGOXIN [Suspect]
     Indication: ATRIAL FIBRILLATION
     Route: 048
     Dates: start: 20070711, end: 20071112
  56. WARFARIN SODIUM [Concomitant]
  57. PANTOPRAZOLE SODIUM [Concomitant]
  58. AMLODIPINE BESYLATE [Concomitant]
  59. PROPOXYPHENE HCL AND ACETAMINOPHEN [Concomitant]
  60. MOMETASONE FUROATE [Concomitant]
  61. VICODIN [Concomitant]
  62. ALPRAZOLAM [Concomitant]
  63. DIPROLENE [Concomitant]

REACTIONS (94)
  - WEIGHT DECREASED [None]
  - VOMITING [None]
  - DRUG ERUPTION [None]
  - FATIGUE [None]
  - INTERSTITIAL LUNG DISEASE [None]
  - LEFT VENTRICULAR HYPERTROPHY [None]
  - MECHANICAL VENTILATION [None]
  - CONFUSIONAL STATE [None]
  - HYPERCHOLESTEROLAEMIA [None]
  - LUPUS NEPHRITIS [None]
  - MENTAL STATUS CHANGES [None]
  - PNEUMONIA [None]
  - DIZZINESS [None]
  - ANAEMIA OF CHRONIC DISEASE [None]
  - ANXIETY [None]
  - ATELECTASIS [None]
  - INTERNATIONAL NORMALISED RATIO INCREASED [None]
  - PAIN [None]
  - HAEMOGLOBIN DECREASED [None]
  - NEPHRITIS [None]
  - ABDOMINAL PAIN [None]
  - ABDOMINAL PAIN UPPER [None]
  - ECHOCARDIOGRAM ABNORMAL [None]
  - OCCULT BLOOD [None]
  - RENAL FAILURE [None]
  - VASCULITIS [None]
  - PYREXIA [None]
  - HYPERTENSION [None]
  - CARDIOMEGALY [None]
  - TROPONIN INCREASED [None]
  - BLOOD UREA INCREASED [None]
  - GASTROENTERITIS [None]
  - CYSTITIS HAEMORRHAGIC [None]
  - COMPUTERISED TOMOGRAM ABNORMAL [None]
  - CONJUNCTIVITIS [None]
  - CONSTIPATION [None]
  - INCREASED TENDENCY TO BRUISE [None]
  - LABORATORY TEST ABNORMAL [None]
  - RHONCHI [None]
  - ASTHENIA [None]
  - DIARRHOEA [None]
  - OESOPHAGEAL CANDIDIASIS [None]
  - CEREBROVASCULAR ACCIDENT [None]
  - SWELLING [None]
  - PULMONARY OEDEMA [None]
  - DEPRESSION [None]
  - DIVERTICULUM INTESTINAL [None]
  - DYSPEPSIA [None]
  - LYMPHADENOPATHY [None]
  - OTITIS MEDIA [None]
  - RENAL CYST [None]
  - VERTIGO [None]
  - SYNCOPE [None]
  - FAILURE TO THRIVE [None]
  - CHEST PAIN [None]
  - THROMBOCYTOPENIA [None]
  - DELUSION [None]
  - BREATH SOUNDS ABNORMAL [None]
  - PROTEINURIA [None]
  - TRANSFUSION [None]
  - DECREASED APPETITE [None]
  - ATRIAL FIBRILLATION [None]
  - PAIN IN EXTREMITY [None]
  - CHEST DISCOMFORT [None]
  - ABASIA [None]
  - HAEMATURIA [None]
  - CEREBRAL SMALL VESSEL ISCHAEMIC DISEASE [None]
  - HYPONATRAEMIA [None]
  - LUNG INFILTRATION [None]
  - CARDIAC DISORDER [None]
  - NAUSEA [None]
  - ELECTROCARDIOGRAM ST SEGMENT DEPRESSION [None]
  - NECK PAIN [None]
  - COUGH [None]
  - SYSTEMIC LUPUS ERYTHEMATOSUS [None]
  - ABDOMINAL DISTENSION [None]
  - ATAXIA [None]
  - MASTOIDITIS [None]
  - NEPHROPATHY [None]
  - VISUAL IMPAIRMENT [None]
  - HYPOKALAEMIA [None]
  - URINARY BLADDER HAEMORRHAGE [None]
  - PROTHROMBIN TIME PROLONGED [None]
  - PLEURAL EFFUSION [None]
  - HERPES ZOSTER [None]
  - MUSCULOSKELETAL DISCOMFORT [None]
  - ECONOMIC PROBLEM [None]
  - ENDOTRACHEAL INTUBATION [None]
  - GASTROINTESTINAL HAEMORRHAGE [None]
  - HEPATIC CYST [None]
  - MEMORY IMPAIRMENT [None]
  - OEDEMA [None]
  - TACHYCARDIA [None]
  - URINARY TRACT INFECTION [None]
